FAERS Safety Report 9648313 (Version 1)
Quarter: 2013Q4

REPORT INFORMATION
  Report Type: Spontaneous
  Country: US (occurrence: US)
  Receive Date: 20131028
  Receipt Date: 20131028
  Transmission Date: 20140711
  Serious: Yes (Other)
  Sender: FDA-Public Use
  Company Number: US-BAYER-2013-127077

PATIENT
  Age: 34 Year
  Sex: Female
  Weight: 52.15 kg

DRUGS (1)
  1. ALEVE CAPLET [Suspect]
     Indication: DYSMENORRHOEA
     Dosage: 2 DF, QID
     Route: 048
     Dates: start: 20130813, end: 20130814

REACTIONS (3)
  - Abdominal mass [Not Recovered/Not Resolved]
  - Drug ineffective [None]
  - Extra dose administered [None]
